FAERS Safety Report 8756766 (Version 2)
Quarter: 2012Q4

REPORT INFORMATION
  Report Type: 
  Country: US (occurrence: US)
  Receive Date: 20120823
  Receipt Date: 20120903
  Transmission Date: 20130627
  Serious: Yes (Hospitalization)
  Sender: FDA-Public Use
  Company Number: US-ELI_LILLY_AND_COMPANY-US201208006126

PATIENT
  Age: 58 Year
  Sex: Male

DRUGS (6)
  1. CYMBALTA [Suspect]
     Indication: DEPRESSION
     Dosage: 30 mg, qd
  2. CYMBALTA [Suspect]
     Dosage: 60 mg, qd
  3. DIOVAN [Concomitant]
     Dosage: 160 mg, UNK
  4. LIVALO [Concomitant]
     Dosage: 2 mg, UNK
  5. VITAMIN D NOS [Concomitant]
     Dosage: 2000 IU, UNK
  6. ASPIRIN [Concomitant]
     Dosage: 81 mg, UNK

REACTIONS (8)
  - Dizziness [Unknown]
  - Vertigo [Unknown]
  - Tinnitus [Unknown]
  - Drug withdrawal syndrome [Unknown]
  - Fatigue [Unknown]
  - Apathy [Unknown]
  - Disturbance in attention [Unknown]
  - Intentional drug misuse [Unknown]
